FAERS Safety Report 15283288 (Version 1)
Quarter: 2018Q3

REPORT INFORMATION
  Report Type: Spontaneous
  Country: US (occurrence: US)
  Receive Date: 20180816
  Receipt Date: 20180816
  Transmission Date: 20181010
  Serious: Yes (Other)
  Sender: FDA-Public Use
  Company Number: US-ELI_LILLY_AND_COMPANY-US201808004167

PATIENT
  Age: 63 Year
  Sex: Female

DRUGS (5)
  1. CARBOPLATIN. [Suspect]
     Active Substance: CARBOPLATIN
     Indication: NON-SMALL CELL LUNG CANCER
     Dosage: UNK, UNKNOWN
     Route: 065
     Dates: start: 20170217, end: 20170421
  2. ALIMTA [Suspect]
     Active Substance: PEMETREXED DISODIUM
     Dosage: 500 MG/M2, UNKNOWN
     Route: 065
     Dates: start: 20170512, end: 20171013
  3. AVASTIN [Suspect]
     Active Substance: BEVACIZUMAB
     Dosage: UNK, UNKNOWN
     Route: 065
     Dates: start: 20170512, end: 20171013
  4. ALIMTA [Suspect]
     Active Substance: PEMETREXED DISODIUM
     Indication: NON-SMALL CELL LUNG CANCER
     Dosage: 500 MG/M2, UNKNOWN
     Route: 065
     Dates: start: 20170217, end: 20170421
  5. AVASTIN [Suspect]
     Active Substance: BEVACIZUMAB
     Indication: NON-SMALL CELL LUNG CANCER
     Dosage: UNK, UNKNOWN
     Route: 065
     Dates: start: 20170217, end: 20170421

REACTIONS (31)
  - Skin disorder [Unknown]
  - Decreased appetite [Unknown]
  - Malignant neoplasm progression [Unknown]
  - Vision blurred [Unknown]
  - Dysphagia [Unknown]
  - Rash [Unknown]
  - Nervousness [Unknown]
  - Dyspepsia [Unknown]
  - Epistaxis [Unknown]
  - Dry mouth [Unknown]
  - Tinnitus [Unknown]
  - Hypoaesthesia [Unknown]
  - Anxiety [Unknown]
  - Ear pain [Unknown]
  - Oropharyngeal pain [Unknown]
  - Headache [Unknown]
  - Otorrhoea [Unknown]
  - Off label use [Unknown]
  - Depression [Unknown]
  - Amnesia [Unknown]
  - Dyspnoea [Unknown]
  - Vomiting [Unknown]
  - Constipation [Unknown]
  - Polydipsia [Unknown]
  - Fatigue [Unknown]
  - Insomnia [Unknown]
  - Nausea [Unknown]
  - Weight decreased [Unknown]
  - Arthralgia [Unknown]
  - Diarrhoea [Unknown]
  - Dysgeusia [Unknown]

NARRATIVE: CASE EVENT DATE: 20170224
